FAERS Safety Report 12610981 (Version 2)
Quarter: 2016Q3

REPORT INFORMATION
  Report Type: Spontaneous
  Country: US (occurrence: US)
  Receive Date: 20160801
  Receipt Date: 20160802
  Transmission Date: 20161109
  Serious: No
  Sender: FDA-Public Use
  Company Number: US-PFIZER INC-2016367891

PATIENT
  Age: 79 Year
  Sex: Female

DRUGS (3)
  1. CLINDAMYCIN [Concomitant]
     Active Substance: CLINDAMYCIN\CLINDAMYCIN PHOSPHATE
     Dosage: UNK
  2. MELOXICAM. [Concomitant]
     Active Substance: MELOXICAM
     Dosage: UNK
  3. IBRANCE [Suspect]
     Active Substance: PALBOCICLIB
     Dosage: 125 MG, AS NEEDED ( EVERY DAY FOR 21 DAYS THEN 7 DAYS OFF AS DIRECTED)
     Route: 048
     Dates: start: 20160317

REACTIONS (2)
  - Blood count abnormal [Recovered/Resolved]
  - Product use issue [Unknown]
